FAERS Safety Report 18035030 (Version 3)
Quarter: 2020Q4

REPORT INFORMATION
  Report Type: Other
  Country: FR (occurrence: FR)
  Receive Date: 20200717
  Receipt Date: 20201006
  Transmission Date: 20210113
  Serious: Yes (Life-Threatening, Hospitalization, Other)
  Sender: FDA-Public Use
  Company Number: FR-SUNRISE PHARMACEUTICAL, INC.-2087454

PATIENT
  Age: 58 Year
  Sex: Female

DRUGS (5)
  1. ACEBUTOLOL HYDROCHLORIDE. [Concomitant]
     Active Substance: ACEBUTOLOL HYDROCHLORIDE
     Route: 065
  2. CITALOPRAM [Concomitant]
     Active Substance: CITALOPRAM HYDROBROMIDE
     Route: 065
  3. NAPROXEN. [Suspect]
     Active Substance: NAPROXEN
     Indication: POISONING DELIBERATE
     Route: 048
  4. ZOPICLONE [Suspect]
     Active Substance: ZOPICLONE
     Route: 065
  5. OXAZEPAM. [Suspect]
     Active Substance: OXAZEPAM
     Route: 065

REACTIONS (13)
  - Toxicity to various agents [Unknown]
  - Psychomotor retardation [Unknown]
  - Lactic acidosis [Recovered/Resolved]
  - Transaminases increased [Recovered/Resolved]
  - Thrombocytopenia [Recovered/Resolved]
  - Electrocardiogram QT prolonged [Recovered/Resolved]
  - Hypocoagulable state [Recovered/Resolved]
  - Cardiogenic shock [Recovered/Resolved]
  - Suicide attempt [Unknown]
  - Speech disorder [Unknown]
  - Coma [Recovered/Resolved]
  - Pneumonia aspiration [Unknown]
  - Intentional overdose [Unknown]
